FAERS Safety Report 8193756-6 (Version None)
Quarter: 2012Q1

REPORT INFORMATION
  Report Type: 
  Country: None (occurrence: None)
  Receive Date: 20120308
  Receipt Date: 20120228
  Transmission Date: 20120608
  Serious: Yes (Hospitalization, Congenital Anomaly)
  Sender: FDA-Public Use
  Company Number: US-JNJFOC-20111103963

PATIENT
  Sex: Male

DRUGS (8)
  1. TOPAMAX [Suspect]
     Indication: FOETAL EXPOSURE DURING PREGNANCY
     Route: 064
     Dates: start: 20060101, end: 20070201
  2. ALBUTEROL [Concomitant]
     Indication: ASTHMA
     Route: 065
  3. COMBIVENT [Concomitant]
     Indication: RESPIRATORY TRACT INFECTION
     Route: 065
  4. EFFEXOR XR [Concomitant]
     Indication: DEPRESSION
  5. CYCLOBENZAPRINE [Concomitant]
     Indication: HEADACHE
     Route: 065
  6. AMOXICILLIN [Concomitant]
     Indication: RESPIRATORY TRACT INFECTION
     Route: 048
  7. KETEK [Concomitant]
     Indication: RESPIRATORY TRACT INFECTION
     Route: 048
  8. COMBIVENT [Concomitant]
     Indication: ASTHMA
     Route: 065

REACTIONS (3)
  - CONGENITAL FOOT MALFORMATION [None]
  - CLEFT PALATE [None]
  - CLEFT LIP [None]
